FAERS Safety Report 7292774-X (Version None)
Quarter: 2011Q1

REPORT INFORMATION
  Report Type: 
  Country: None (occurrence: None)
  Receive Date: 20110203
  Receipt Date: 20090622
  Transmission Date: 20110831
  Serious: No
  Sender: FDA-Public Use
  Company Number: 2009-00065

PATIENT
  Age: 52 Year
  Sex: Female
  Weight: 86.1834 kg

DRUGS (2)
  1. CRESTOR [Concomitant]
  2. ZICAM COLD REMEDY GEL SWABS [Suspect]

REACTIONS (2)
  - ANOSMIA [None]
  - AGEUSIA [None]
